FAERS Safety Report 6314541-3 (Version None)
Quarter: 2009Q3

REPORT INFORMATION
  Report Type: 
  Country: None (occurrence: None)
  Receive Date: 20090818
  Receipt Date: 20090818
  Transmission Date: 20100115
  Serious: Yes (Other)
  Sender: FDA-Public Use
  Company Number: None

PATIENT
  Age: 53 Year
  Sex: Female
  Weight: 79.3795 kg

DRUGS (1)
  1. GABAPENTIN [Suspect]
     Indication: NEURALGIA
     Dosage: THREE TIME - DAILY
     Dates: start: 20090521

REACTIONS (5)
  - ERYTHEMA [None]
  - INSOMNIA [None]
  - PRURITUS [None]
  - RASH [None]
  - URTICARIA [None]
